FAERS Safety Report 21364931 (Version 1)
Quarter: 2022Q3

REPORT INFORMATION
  Report Type: Spontaneous
  Country: US (occurrence: US)
  Receive Date: 20220922
  Receipt Date: 20220922
  Transmission Date: 20221027
  Serious: No
  Sender: FDA-Public Use
  Company Number: US-CURIUM-2022000631

PATIENT
  Age: 77 Year
  Weight: 94 kg

DRUGS (9)
  1. TETRAKIS(2-METHOXYISOBUTYLISOCYANIDE)COPPER(I) TETRAFLUOROBORATE [Suspect]
     Active Substance: TETRAKIS(2-METHOXYISOBUTYLISOCYANIDE)COPPER(I) TETRAFLUOROBORATE
     Indication: Atrial fibrillation
     Route: 065
     Dates: start: 20220815, end: 20220815
  2. TETRAKIS(2-METHOXYISOBUTYLISOCYANIDE)COPPER(I) TETRAFLUOROBORATE [Suspect]
     Active Substance: TETRAKIS(2-METHOXYISOBUTYLISOCYANIDE)COPPER(I) TETRAFLUOROBORATE
     Indication: Atrial fibrillation
     Route: 065
     Dates: start: 20220818, end: 20220818
  3. ULTRA-TECHNEKOW [Suspect]
     Active Substance: TECHNETIUM TC-99M
     Indication: Atrial fibrillation
     Route: 065
     Dates: start: 20220815, end: 20220815
  4. ULTRA-TECHNEKOW [Suspect]
     Active Substance: TECHNETIUM TC-99M
     Indication: Atrial fibrillation
     Route: 065
     Dates: start: 20220818, end: 20220818
  5. ASPIRIN [Concomitant]
     Active Substance: ASPIRIN
     Indication: Product used for unknown indication
     Route: 065
  6. LIPITOR [Concomitant]
     Active Substance: ATORVASTATIN CALCIUM
     Indication: Product used for unknown indication
     Route: 065
  7. WELLBUTRIN SR [Concomitant]
     Active Substance: BUPROPION HYDROCHLORIDE
     Indication: Product used for unknown indication
     Route: 065
  8. NORVASC [Concomitant]
     Active Substance: AMLODIPINE BESYLATE
     Indication: Product used for unknown indication
     Route: 065
  9. HYDROCHLOROTHIAZIDE [Concomitant]
     Active Substance: HYDROCHLOROTHIAZIDE
     Indication: Product used for unknown indication
     Route: 065

REACTIONS (4)
  - Radioisotope scan abnormal [Recovered/Resolved]
  - Drug ineffective [Recovered/Resolved]
  - Product preparation error [Recovered/Resolved]
  - Radiation overdose [Recovered/Resolved]

NARRATIVE: CASE EVENT DATE: 20220815
